FAERS Safety Report 6534625-4 (Version None)
Quarter: 2010Q1

REPORT INFORMATION
  Report Type: 
  Country: None (occurrence: None)
  Receive Date: 20100112
  Receipt Date: 20100108
  Transmission Date: 20100710
  Serious: Yes (Hospitalization)
  Sender: FDA-Public Use
  Company Number: B0624292A

PATIENT
  Sex: Male

DRUGS (16)
  1. AUGMENTIN [Suspect]
     Dosage: 1G THREE TIMES PER DAY
     Route: 048
     Dates: start: 20090929, end: 20091016
  2. ELISOR [Suspect]
     Indication: DRUG USE FOR UNKNOWN INDICATION
     Dosage: 20MG TWICE PER DAY
     Route: 048
     Dates: start: 19970101, end: 20091113
  3. STILNOX [Suspect]
     Indication: DRUG USE FOR UNKNOWN INDICATION
     Dosage: 10MG PER DAY
     Route: 048
     Dates: end: 20091113
  4. DOLIPRANE [Suspect]
     Indication: DRUG USE FOR UNKNOWN INDICATION
     Dosage: 500MG UNKNOWN
     Route: 065
  5. NEXIUM [Concomitant]
     Dosage: 20MG PER DAY
     Route: 048
  6. PREVISCAN 20 [Concomitant]
     Dosage: 5MG PER DAY
     Route: 048
  7. LASILIX 40 MG [Concomitant]
     Dosage: 40MG PER DAY
     Route: 048
  8. ALDACTONE [Concomitant]
     Dosage: 25MG PER DAY
     Route: 048
  9. CARDENSIEL [Concomitant]
     Dosage: 2.5MG PER DAY
     Route: 048
  10. VASTAREL [Concomitant]
     Dosage: 35MG TWICE PER DAY
     Route: 048
     Dates: start: 19970101, end: 20091113
  11. PERINDOPRIL ERBUMINE [Concomitant]
     Dosage: 4MG PER DAY
     Route: 048
  12. VAXIGRIP [Concomitant]
     Indication: PROPHYLAXIS
     Route: 030
     Dates: start: 20091003, end: 20091003
  13. CORTANCYL [Concomitant]
     Indication: IDIOPATHIC THROMBOCYTOPENIC PURPURA
     Route: 065
     Dates: start: 20090601
  14. NITROGLYCERIN [Concomitant]
     Route: 065
     Dates: start: 19970101
  15. NOVOMIX [Concomitant]
     Dosage: 70IU PER DAY
     Route: 065
     Dates: start: 20090601
  16. DISCOTRINE [Concomitant]
     Dosage: 11UNIT PER DAY
     Route: 065

REACTIONS (8)
  - CHOLANGIOLITIS [None]
  - HEPATIC FIBROSIS [None]
  - HEPATITIS CHOLESTATIC [None]
  - JAUNDICE [None]
  - LIVER DISORDER [None]
  - PRURIGO [None]
  - PRURITUS [None]
  - VENOUS INJURY [None]
